FAERS Safety Report 7041047-9 (Version None)
Quarter: 2010Q4

REPORT INFORMATION
  Report Type: 
  Country: None (occurrence: None)
  Receive Date: 20101013
  Receipt Date: 20100930
  Transmission Date: 20110411
  Serious: Yes (Hospitalization, Other)
  Sender: FDA-Public Use
  Company Number: CA-ELI_LILLY_AND_COMPANY-CA201010000261

PATIENT
  Age: 22 Year
  Sex: Male

DRUGS (3)
  1. ZYPREXA [Suspect]
     Indication: PSYCHOTIC DISORDER
     Dosage: 5 MG, UNK
     Dates: start: 20090603, end: 20090605
  2. ZIPRASIDONE HCL [Concomitant]
     Indication: PSYCHOTIC DISORDER
     Dosage: 20 MG, 2/D
     Route: 048
     Dates: start: 20090604, end: 20090606
  3. EFFEXOR [Concomitant]
     Indication: DEPRESSION
     Dosage: 375 MG, UNK
     Dates: end: 20100604

REACTIONS (5)
  - ANXIETY [None]
  - DYSPHAGIA [None]
  - DYSPNOEA [None]
  - DYSTONIA [None]
  - PHARYNGEAL OEDEMA [None]
